FAERS Safety Report 12080952 (Version 2)
Quarter: 2016Q1

REPORT INFORMATION
  Report Type: Spontaneous
  Country: US (occurrence: US)
  Receive Date: 20160216
  Receipt Date: 20160302
  Transmission Date: 20160526
  Serious: Yes (Hospitalization, Other)
  Sender: FDA-Public Use
  Company Number: US-SMITH AND NEPHEW, INC-2016SMT00114

PATIENT
  Age: 54 Year
  Sex: Female
  Weight: 135.15 kg

DRUGS (13)
  1. NEXIUM [Concomitant]
     Active Substance: ESOMEPRAZOLE MAGNESIUM
     Dosage: 40 MG, 1X/DAY
     Route: 048
  2. LOVASTATIN. [Concomitant]
     Active Substance: LOVASTATIN
     Dosage: 20 MG, 1X/DAY
  3. NABUMETONE. [Concomitant]
     Active Substance: NABUMETONE
     Dosage: 500 MG, 2X/DAY
     Route: 048
  4. CENTRUM SILVER [Concomitant]
     Active Substance: MINERALS\VITAMINS
     Dosage: 1 TABLETS, 1X/DAY
     Route: 048
  5. ALBUTEROL. [Concomitant]
     Active Substance: ALBUTEROL
     Dosage: 2 DOSAGE UNITS, EVERY 4 HOURS
  6. REGRANEX [Suspect]
     Active Substance: BECAPLERMIN
     Indication: WOUND
     Dosage: UNK UNK, 1X/DAY
     Route: 061
     Dates: start: 201512
  7. PERCOCET [Concomitant]
     Active Substance: ACETAMINOPHEN\OXYCODONE HYDROCHLORIDE
     Dosage: 1 TABLETS, EVERY 4-6 HOURS
  8. ELAVIL [Concomitant]
     Active Substance: AMITRIPTYLINE HYDROCHLORIDE
     Dosage: 25 MG, 1X/DAY
     Route: 048
  9. NOVOLIN N [Concomitant]
     Active Substance: INSULIN HUMAN
     Dosage: 40 U, 2X/DAY
     Route: 058
  10. GLIPIZIDE. [Concomitant]
     Active Substance: GLIPIZIDE
     Dosage: 10 MG, 1X/DAY
     Route: 048
  11. NEURONTIN [Concomitant]
     Active Substance: GABAPENTIN
     Dosage: 600 MG, 3X/DAY
     Route: 048
  12. TRAMADOL. [Concomitant]
     Active Substance: TRAMADOL
     Dosage: 50 MG, AS NEEDED
  13. LASIX [Concomitant]
     Active Substance: FUROSEMIDE
     Dosage: 40 MG, EVERY 48 HOURS
     Route: 048

REACTIONS (8)
  - Cellulitis [Unknown]
  - Soft tissue swelling [Unknown]
  - Decubitus ulcer [Unknown]
  - Staphylococcus test positive [Unknown]
  - Hypertension [Unknown]
  - Application site infection [Recovered/Resolved]
  - Bone marrow oedema [Unknown]
  - Insomnia [Unknown]

NARRATIVE: CASE EVENT DATE: 2016
